FAERS Safety Report 22814367 (Version 2)
Quarter: 2023Q4

REPORT INFORMATION
  Report Type: Spontaneous
  Country: FR (occurrence: FR)
  Receive Date: 20230811
  Receipt Date: 20231120
  Transmission Date: 20240109
  Serious: Yes (Death, Other)
  Sender: FDA-Public Use
  Company Number: FR-SA-2023SA242660

PATIENT
  Age: 15 Year
  Sex: Male

DRUGS (8)
  1. ANTI-THYMOCYTE GLOBULIN (RABBIT) NOS [Suspect]
     Active Substance: LAPINE T-LYMPHOCYTE IMMUNE GLOBULIN
     Indication: Immunosuppressant drug therapy
     Dosage: UNK
  2. PREDNISOLONE [Suspect]
     Active Substance: PREDNISOLONE
     Indication: Immunosuppressant drug therapy
     Dosage: UNK
  3. TACROLIMUS [Suspect]
     Active Substance: TACROLIMUS
     Indication: Immunosuppressant drug therapy
     Dosage: UNK
  4. MYCOPHENOLATE MOFETIL [Suspect]
     Active Substance: MYCOPHENOLATE MOFETIL
     Indication: Immunosuppressant drug therapy
     Dosage: UNK
  5. CYCLOPHOSPHAMIDE [Suspect]
     Active Substance: CYCLOPHOSPHAMIDE
     Indication: Immunosuppressant drug therapy
     Dosage: UNK
  6. RITUXIMAB [Concomitant]
     Active Substance: RITUXIMAB
     Indication: Immunosuppressant drug therapy
     Dosage: 375 MG/M2
  7. VINCRISTINE [Concomitant]
     Active Substance: VINCRISTINE
     Indication: Immunosuppressant drug therapy
     Dosage: UNK
  8. DOXORUBICIN [Concomitant]
     Active Substance: DOXORUBICIN
     Indication: Immunosuppressant drug therapy
     Dosage: UNK

REACTIONS (13)
  - Diffuse large B-cell lymphoma [Fatal]
  - Necrotic lymphadenopathy [Fatal]
  - Post transplant lymphoproliferative disorder [Unknown]
  - Abdominal pain [Unknown]
  - Gastrointestinal wall thickening [Unknown]
  - Intestinal obstruction [Unknown]
  - Ascites [Unknown]
  - Melaena [Unknown]
  - Gastrointestinal haemorrhage [Unknown]
  - Gastric mucosal lesion [Unknown]
  - Rectal haemorrhage [Unknown]
  - Epstein-Barr virus infection reactivation [Unknown]
  - Pleural effusion [Unknown]
